FAERS Safety Report 6391679-6 (Version None)
Quarter: 2009Q4

REPORT INFORMATION
  Report Type: 
  Country: None (occurrence: None)
  Receive Date: 20091005
  Receipt Date: 20090930
  Transmission Date: 20100525
  Serious: Yes (Hospitalization)
  Sender: FDA-Public Use
  Company Number: 09GB004042

PATIENT
  Age: 82 Year
  Sex: Male

DRUGS (2)
  1. NAPROXEN SODIUM [Suspect]
     Indication: SPINAL OSTEOARTHRITIS
     Dosage: ORAL
     Route: 048
     Dates: end: 20090822
  2. CILAZAPRIL (CILAZAPRIL) [Concomitant]

REACTIONS (2)
  - DUODENAL ULCER [None]
  - UPPER GASTROINTESTINAL HAEMORRHAGE [None]
